FAERS Safety Report 18695665 (Version 1)
Quarter: 2021Q1

REPORT INFORMATION
  Report Type: Spontaneous
  Country: GB (occurrence: GB)
  Receive Date: 20210104
  Receipt Date: 20210104
  Transmission Date: 20210419
  Serious: Yes (Other)
  Sender: FDA-Public Use
  Company Number: GB-MYLANLABS-2020M1105654

PATIENT

DRUGS (8)
  1. MOMETASONE [Concomitant]
     Active Substance: MOMETASONE
     Dosage: APPLY TWICE DAILY FOR TWO WEEKS, THEN ONCE DAIL...
     Dates: start: 20201027, end: 20201124
  2. SALBUTAMOL [Concomitant]
     Active Substance: ALBUTEROL
     Dosage: UNK UNK, PRN, AS NECESSARY
     Dates: start: 20190723
  3. CETRABEN                           /01690401/ [Concomitant]
     Dosage: 2 DOSAGE FORM, QD
     Dates: start: 20201027
  4. OMEPRAZOLE. [Suspect]
     Active Substance: OMEPRAZOLE
     Indication: GASTRITIS
     Dosage: 20 MILLIGRAM, QD
     Dates: start: 20201130
  5. PANTOPRAZOLE [Concomitant]
     Active Substance: PANTOPRAZOLE
     Indication: ABDOMINAL DISTENSION
     Dosage: 1?2 PER DAY FOR ACID SYMPTOMS/BLOATING
     Dates: start: 20201209
  6. COCODAMOL [Concomitant]
     Active Substance: ACETAMINOPHEN\CODEINE PHOSPHATE
     Dosage: 4 QD,TAKE 1 OR 2
     Dates: start: 20201127
  7. RANITIDINE. [Concomitant]
     Active Substance: RANITIDINE
     Dosage: 2 DOSAGE FORM, QD
     Dates: start: 20190723
  8. CLENIL MODULITE [Concomitant]
     Active Substance: BECLOMETHASONE DIPROPIONATE
     Dosage: 1 ?2 PUFFS, QD, 2
     Route: 055
     Dates: start: 20190723

REACTIONS (4)
  - Drug hypersensitivity [Unknown]
  - Tongue pruritus [Unknown]
  - Ear pain [Recovered/Resolved]
  - Oral pruritus [Recovered/Resolved]

NARRATIVE: CASE EVENT DATE: 20201209
